FAERS Safety Report 10413922 (Version 1)
Quarter: 2014Q3

REPORT INFORMATION
  Report Type: Spontaneous
  Country: IN (occurrence: None)
  Receive Date: 20140825
  Receipt Date: 20140825
  Transmission Date: 20150326
  Serious: Yes (Hospitalization, Other)
  Sender: FDA-Public Use
  Company Number: AUR-APL-2014-09006

PATIENT
  Age: 54 Year
  Sex: Female

DRUGS (1)
  1. AMLODIPINE [Suspect]
     Active Substance: AMLODIPINE BESYLATE
     Indication: HYPERTENSION

REACTIONS (9)
  - Mastication disorder [None]
  - Granuloma [None]
  - Loose tooth [None]
  - Gingival hypertrophy [None]
  - Speech disorder [None]
  - Bone loss [None]
  - Gingival inflammation [None]
  - Erythema [None]
  - Macrognathia [None]
